FAERS Safety Report 17494552 (Version 1)
Quarter: 2020Q1

REPORT INFORMATION
  Report Type: Spontaneous
  Country: US (occurrence: US)
  Receive Date: 20200304
  Receipt Date: 20200304
  Transmission Date: 20200409
  Serious: No
  Sender: FDA-Public Use
  Company Number: US-LUPIN PHARMACEUTICALS INC.-2020-00950

PATIENT
  Sex: Female
  Weight: 72 kg

DRUGS (1)
  1. AMLODIPINE [Suspect]
     Active Substance: AMLODIPINE BESYLATE
     Indication: HYPERTENSION
     Dosage: UNK UNK, QD (TAKES EVERY AM)
     Route: 048
     Dates: start: 201909, end: 201912

REACTIONS (1)
  - Blood pressure fluctuation [Not Recovered/Not Resolved]
